FAERS Safety Report 4323200-8 (Version None)
Quarter: 2004Q1

REPORT INFORMATION
  Report Type: 
  Country: None (occurrence: None)
  Receive Date: 20040322
  Receipt Date: 20040311
  Transmission Date: 20041129
  Serious: Yes (Other)
  Sender: FDA-Public Use
  Company Number: HQWYE776212MAR04

PATIENT
  Age: 56 Year
  Sex: Female

DRUGS (4)
  1. EFFEXOR XR [Suspect]
     Indication: DEPRESSION
     Dosage: 150 MG 1X PER 1 DAY, ORAL
     Route: 048
     Dates: start: 20021210
  2. CALCIUM [Concomitant]
  3. POTASSIUM [Concomitant]
  4. SYNTHROID [Concomitant]

REACTIONS (2)
  - ANXIETY [None]
  - PARATHYROID DISORDER [None]
